FAERS Safety Report 11267422 (Version 2)
Quarter: 2015Q3

REPORT INFORMATION
  Report Type: Report from Study
  Country: CA (occurrence: CA)
  Receive Date: 20150713
  Receipt Date: 20150902
  Transmission Date: 20151125
  Serious: Yes (Other)
  Sender: FDA-Public Use
  Company Number: CA-BAXALTA-2015BLT000344

PATIENT

DRUGS (3)
  1. ADVATE [Suspect]
     Active Substance: ANTIHEMOPHILIC FACTOR, HUMAN RECOMBINANT
     Indication: HAEMORRHAGE PROPHYLAXIS
     Dosage: 1000 IU, 1X A WEEK
     Route: 042
     Dates: start: 20150617
  2. ADVATE [Suspect]
     Active Substance: ANTIHEMOPHILIC FACTOR, HUMAN RECOMBINANT
     Dosage: 1000 IU, 1X A WEEK
     Route: 042
     Dates: start: 20150624
  3. ADVATE [Suspect]
     Active Substance: ANTIHEMOPHILIC FACTOR, HUMAN RECOMBINANT
     Indication: FACTOR VIII DEFICIENCY
     Dosage: UNK UNK, AS NEEDED
     Route: 042
     Dates: start: 20150331

REACTIONS (4)
  - Fall [Recovering/Resolving]
  - Joint swelling [Recovering/Resolving]
  - Scratch [Recovering/Resolving]
  - Soft tissue haemorrhage [Recovering/Resolving]

NARRATIVE: CASE EVENT DATE: 20150630
